FAERS Safety Report 20684950 (Version 1)
Quarter: 2022Q2

REPORT INFORMATION
  Report Type: Spontaneous
  Country: US (occurrence: None)
  Receive Date: 20220407
  Receipt Date: 20220407
  Transmission Date: 20220721
  Serious: Yes (Life-Threatening)
  Sender: FDA-Public Use
  Company Number: US-Merck Healthcare KGaA-9311308

PATIENT
  Sex: Female

DRUGS (3)
  1. AVELUMAB [Suspect]
     Active Substance: AVELUMAB
     Indication: Product used for unknown indication
     Route: 042
  2. TAXOL [Concomitant]
     Active Substance: PACLITAXEL
     Indication: Product used for unknown indication
  3. PELAREOREP [Concomitant]
     Active Substance: PELAREOREP
     Indication: Product used for unknown indication

REACTIONS (1)
  - Septic shock [Unknown]
